FAERS Safety Report 20706395 (Version 1)
Quarter: 2022Q2

REPORT INFORMATION
  Report Type: Spontaneous
  Country: SG (occurrence: SG)
  Receive Date: 20220413
  Receipt Date: 20220413
  Transmission Date: 20220721
  Serious: Yes (Hospitalization, Other)
  Sender: FDA-Public Use
  Company Number: SG-AZURITY PHARMACEUTICALS, INC.-SG-2022ARB000943

PATIENT

DRUGS (1)
  1. ENALAPRIL [Suspect]
     Active Substance: ENALAPRIL
     Indication: Myocardial infarction
     Dosage: UNK

REACTIONS (1)
  - Reversible airways obstruction [Recovered/Resolved]
